FAERS Safety Report 9559405 (Version 1)
Quarter: 2013Q3

REPORT INFORMATION
  Report Type: Spontaneous
  Country: US (occurrence: None)
  Receive Date: 20130924
  Receipt Date: 20130924
  Transmission Date: 20140515
  Serious: Yes (Hospitalization)
  Sender: FDA-Public Use
  Company Number: SPR-00201

PATIENT
  Age: 33 Year
  Sex: Female

DRUGS (1)
  1. PHENTERMINE [Suspect]
     Indication: OBESITY

REACTIONS (4)
  - Spinal cord infarction [None]
  - Blood glucose increased [None]
  - Glycosylated haemoglobin increased [None]
  - Vasoconstriction [None]
